FAERS Safety Report 8882320 (Version 1)
Quarter: 2012Q4

REPORT INFORMATION
  Report Type: 
  Country: FR (occurrence: FR)
  Receive Date: 20121102
  Receipt Date: 20121102
  Transmission Date: 20130627
  Serious: Yes (Hospitalization)
  Sender: FDA-Public Use
  Company Number: FR-BAXTER-2012BAX021058

PATIENT
  Age: 48 Year
  Sex: Female

DRUGS (5)
  1. ENDOXAN 2000 MG, LYOPHILISAT POUR SOLUTION INJECTABLE [Suspect]
     Indication: CHRONIC LYMPHOID LEUKEMIA
     Route: 042
     Dates: start: 20120906, end: 20120909
  2. MABTHERA [Suspect]
     Indication: CHRONIC LYMPHOID LEUKEMIA
     Route: 042
     Dates: start: 20120906, end: 20120906
  3. FLUDARABINE [Suspect]
     Indication: CHRONIC LYMPHOID LEUKEMIA
     Route: 042
     Dates: start: 20120906, end: 20120909
  4. ZELITREX [Concomitant]
     Indication: DRUG USE FOR UNKNOWN INDICATION
     Route: 065
  5. BACTRIM [Concomitant]
     Indication: DRUG USE FOR UNKNOWN INDICATION
     Route: 065

REACTIONS (2)
  - Febrile bone marrow aplasia [Recovering/Resolving]
  - Haemolytic anaemia [Recovering/Resolving]
